FAERS Safety Report 15009237 (Version 3)
Quarter: 2018Q4

REPORT INFORMATION
  Report Type: Report from Study
  Country: US (occurrence: US)
  Receive Date: 20180614
  Receipt Date: 20181105
  Transmission Date: 20190204
  Serious: Yes (Hospitalization)
  Sender: FDA-Public Use
  Company Number: US-UCBSA-2016033024

PATIENT
  Sex: Male

DRUGS (3)
  1. KEPPRA [Suspect]
     Active Substance: LEVETIRACETAM
     Dosage: 1000 MG, 2X/DAY (BID)
  2. LACOSAMIDE. [Suspect]
     Active Substance: LACOSAMIDE
     Indication: PRODUCT USED FOR UNKNOWN INDICATION
     Dosage: UNKNOWN DOSE
  3. KEPPRA [Suspect]
     Active Substance: LEVETIRACETAM
     Indication: SEIZURE
     Dosage: 1000, 2X/DAY (BID)

REACTIONS (21)
  - Feeling abnormal [Recovered/Resolved]
  - Generalised tonic-clonic seizure [Unknown]
  - Adverse drug reaction [Recovering/Resolving]
  - Fatigue [Unknown]
  - Product dose omission [Unknown]
  - Gastric disorder [Unknown]
  - Drug ineffective [Unknown]
  - Headache [Recovered/Resolved]
  - Somnolence [Not Recovered/Not Resolved]
  - Myalgia [Unknown]
  - Nasopharyngitis [Recovered/Resolved]
  - Vitamin D deficiency [Unknown]
  - Thinking abnormal [Unknown]
  - Abnormal behaviour [Unknown]
  - Dysgeusia [Unknown]
  - Aura [Recovered/Resolved]
  - Parosmia [Unknown]
  - Dizziness [Unknown]
  - Unevaluable event [Unknown]
  - Inflammation [Unknown]
  - Wrong technique in product usage process [Unknown]
